FAERS Safety Report 7576807-9 (Version None)
Quarter: 2011Q2

REPORT INFORMATION
  Report Type: 
  Country: None (occurrence: None)
  Receive Date: 20110624
  Receipt Date: 20110624
  Transmission Date: 20111010
  Serious: Yes (Other)
  Sender: FDA-Public Use
  Company Number: None

PATIENT
  Sex: Male
  Weight: 62.1428 kg

DRUGS (5)
  1. DEXAMETHASONE [Concomitant]
  2. PALONOSETRON [Concomitant]
  3. ISTODAX [Suspect]
     Indication: T-CELL LYMPHOMA
     Dosage: 25MG D1, 8 Q28- IV DRIP
     Route: 041
     Dates: start: 20110110, end: 20110418
  4. DIPHENHYDRAMINE HCL [Concomitant]
  5. RANITIDINE [Concomitant]

REACTIONS (1)
  - RASH [None]
